FAERS Safety Report 5675571-8 (Version None)
Quarter: 2008Q1

REPORT INFORMATION
  Report Type: 
  Country: None (occurrence: None)
  Receive Date: 20080321
  Receipt Date: 20080311
  Transmission Date: 20080703
  Serious: Yes (Other)
  Sender: FDA-Public Use
  Company Number: DE-JNJFOC-20080302333

PATIENT
  Age: 55 Year
  Sex: Male

DRUGS (1)
  1. TAVANIC [Suspect]
     Indication: BRONCHITIS BACTERIAL
     Route: 048

REACTIONS (2)
  - ARTHRALGIA [None]
  - LOCAL SWELLING [None]
